FAERS Safety Report 5760837-3 (Version None)
Quarter: 2008Q2

REPORT INFORMATION
  Report Type: 
  Country: None (occurrence: None)
  Receive Date: 20080606
  Receipt Date: 20080528
  Transmission Date: 20081010
  Serious: Yes (Disabling)
  Sender: FDA-Public Use
  Company Number: US-ROCHE-533576

PATIENT
  Sex: Female
  Weight: 67.6 kg

DRUGS (6)
  1. PEGASYS [Suspect]
     Indication: HEPATITIS C
     Route: 058
     Dates: start: 20071005, end: 20071205
  2. RIBAVIRIN [Suspect]
     Indication: HEPATITIS C
     Dosage: DOSAGE: 3 EVERY MORNING AND 2 EVERY EVENING
     Route: 048
     Dates: start: 20071005, end: 20071205
  3. XANAX [Suspect]
     Indication: DRUG USE FOR UNKNOWN INDICATION
     Route: 065
  4. LISINOPRIL [Concomitant]
     Indication: HYPERTENSION
     Route: 048
  5. ATIVAN [Concomitant]
     Indication: ANXIETY
     Route: 048
  6. HYDROCHLOROTHIAZIDE [Concomitant]
     Indication: HYPERTENSION
     Dosage: DOSAGE RECEIVED DAILY
     Route: 048

REACTIONS (3)
  - ANXIETY [None]
  - CONVULSION [None]
  - OVERDOSE [None]
